FAERS Safety Report 8134457-X (Version None)
Quarter: 2012Q1

REPORT INFORMATION
  Report Type: 
  Country: None (occurrence: None)
  Receive Date: 20120214
  Receipt Date: 20120214
  Transmission Date: 20120608
  Serious: Yes (Hospitalization, Other)
  Sender: FDA-Public Use
  Company Number: None

PATIENT

DRUGS (1)
  1. OLANZAPINE [Suspect]

REACTIONS (5)
  - PRODUCT SUBSTITUTION ISSUE [None]
  - AGGRESSION [None]
  - PSYCHOTIC DISORDER [None]
  - PRODUCT SOLUBILITY ABNORMAL [None]
  - PARANOIA [None]
